FAERS Safety Report 5026848-0 (Version None)
Quarter: 2006Q2

REPORT INFORMATION
  Report Type: 
  Country: None (occurrence: None)
  Receive Date: 20060609
  Receipt Date: 20060530
  Transmission Date: 20061013
  Serious: Yes (Hospitalization)
  Sender: FDA-Public Use
  Company Number: 2006JP001556

PATIENT
  Age: 66 Year
  Sex: Female

DRUGS (13)
  1. PROGRAF [Suspect]
     Indication: MYASTHENIA GRAVIS
     Dosage: 2.5 MG, UNKNOWN/D, ORAL
     Route: 048
     Dates: start: 20031023
  2. MESTINON [Suspect]
  3. LIPITOR [Concomitant]
  4. LASIX [Concomitant]
  5. PREDONINE (PREDNISOLONE SODIUM SUCCINATE) [Concomitant]
  6. PERSANTIN [Concomitant]
  7. LANSOPRAZOLE [Concomitant]
  8. MUCOSTA (REBAMIPIDE) [Concomitant]
  9. AMLODIN (AMLODIPINE BESILATE) TABLET [Concomitant]
  10. FERRUM (SACCHARATED IRON OXIDE) CAPSULE [Concomitant]
  11. PURSENNID (SENNOSIDE A+B CALCIUM) TABLET [Concomitant]
  12. ADALAT CONTROLLED RELEASE TABLET [Concomitant]
  13. FRANDOL (ISOSORBIDE DINITRATE) TAPE [Concomitant]

REACTIONS (5)
  - CONDITION AGGRAVATED [None]
  - NEPHROTIC SYNDROME [None]
  - NEUTROPENIA [None]
  - RENAL IMPAIRMENT [None]
  - WHITE BLOOD CELL COUNT DECREASED [None]
